FAERS Safety Report 8289085-2 (Version None)
Quarter: 2012Q2

REPORT INFORMATION
  Report Type: 
  Country: None (occurrence: None)
  Receive Date: 20120412
  Receipt Date: 20120402
  Transmission Date: 20120825
  Serious: Yes (Hospitalization, Other)
  Sender: FDA-Public Use
  Company Number: 2012P1011940

PATIENT
  Age: 84 Year
  Sex: Male

DRUGS (4)
  1. PYRAZINAMIDE [Concomitant]
  2. RIFAMPIN [Concomitant]
  3. ETHAMBUTOL HYDROCHLORIDE [Concomitant]
  4. ISONIAZID [Suspect]
     Indication: EXTRAPULMONARY TUBERCULOSIS

REACTIONS (6)
  - COUGH [None]
  - ASTHENIA [None]
  - PLEURAL EFFUSION [None]
  - DYSPNOEA [None]
  - SEROSITIS [None]
  - LUPUS-LIKE SYNDROME [None]
